FAERS Safety Report 15438138 (Version 1)
Quarter: 2018Q3

REPORT INFORMATION
  Report Type: Spontaneous
  Country: CA (occurrence: CA)
  Receive Date: 20180928
  Receipt Date: 20180928
  Transmission Date: 20181010
  Serious: Yes (Hospitalization, Other)
  Sender: FDA-Public Use
  Company Number: CA-OCTA-NGAM00218CA

PATIENT
  Age: 9 Year
  Sex: Female

DRUGS (1)
  1. PANZYGA [Suspect]
     Active Substance: HUMAN IMMUNOGLOBULIN G
     Indication: KAWASAKI^S DISEASE
     Dosage: 2 G/KG, 2 DOSES ON 2 DAYS
     Route: 042
     Dates: start: 20171109, end: 20171111

REACTIONS (9)
  - Haemolysis [Unknown]
  - Lip oedema [Unknown]
  - Abdominal pain [Unknown]
  - Headache [Unknown]
  - Anti A antibody positive [Unknown]
  - Haemoglobin decreased [Recovered/Resolved]
  - Reticulocyte count increased [Unknown]
  - Blood urine present [Unknown]
  - Pyrexia [Unknown]

NARRATIVE: CASE EVENT DATE: 201711
